FAERS Safety Report 19698621 (Version 1)
Quarter: 2021Q3

REPORT INFORMATION
  Report Type: Spontaneous
  Country: GB (occurrence: GB)
  Receive Date: 20210813
  Receipt Date: 20210813
  Transmission Date: 20211014
  Serious: No
  Sender: FDA-Public Use
  Company Number: GB-ALKEM LABORATORIES LIMITED-GB-ALKEM-2021-04225

PATIENT
  Age: 33 Year
  Sex: Male
  Weight: 66 kg

DRUGS (15)
  1. QUININE [Concomitant]
     Active Substance: QUININE
     Indication: ILL-DEFINED DISORDER
     Dosage: UNK, ONE TO BE TAKEN EACH NIGHT
     Route: 065
     Dates: start: 20210107
  2. TERBINAFINE. [Concomitant]
     Active Substance: TERBINAFINE
     Indication: ILL-DEFINED DISORDER
     Dosage: UNK, TAKE ONE DAILY
     Route: 065
     Dates: start: 20210505
  3. TRESIBA [Concomitant]
     Active Substance: INSULIN DEGLUDEC
     Indication: ILL-DEFINED DISORDER
     Dosage: UNK, USE ONCE DAILY
     Route: 065
     Dates: start: 20210107
  4. AMITRIPTYLINE HYDROCHLORIDE. [Concomitant]
     Active Substance: AMITRIPTYLINE HYDROCHLORIDE
     Indication: ILL-DEFINED DISORDER
     Dosage: UNK, ONE AT NIGHT
     Route: 065
     Dates: start: 20210507
  5. BUTRANS [Concomitant]
     Active Substance: BUPRENORPHINE
     Indication: ILL-DEFINED DISORDER
     Dosage: UNK, APPLY ONE WEEKLY
     Route: 065
     Dates: start: 20210107
  6. DOXYCYCLINE. [Concomitant]
     Active Substance: DOXYCYCLINE
     Indication: ILL-DEFINED DISORDER
     Dosage: UNK, TWO NOW THEN ONE DAILY
     Route: 065
     Dates: start: 20210319, end: 20210326
  7. IBUPROFEN. [Concomitant]
     Active Substance: IBUPROFEN
     Indication: ILL-DEFINED DISORDER
     Dosage: UNK, TAKE ONE 3 TIMES/DAY
     Route: 065
     Dates: start: 20201013
  8. TOPIRAMATE. [Concomitant]
     Active Substance: TOPIRAMATE
     Indication: ILL-DEFINED DISORDER
     Dosage: UNK, ONCE DAILY AS PER NEUROLOGIST
     Route: 065
     Dates: start: 20200819
  9. PREGABALIN. [Suspect]
     Active Substance: PREGABALIN
     Indication: PRODUCT USED FOR UNKNOWN INDICATION
     Dosage: 25 MILLIGRAM, BID
     Route: 065
     Dates: start: 20210426
  10. FERROUS FUMARATE [Concomitant]
     Active Substance: FERROUS FUMARATE
     Indication: ILL-DEFINED DISORDER
     Dosage: UNK, TAKE ONE 3 TIMES/DAY
     Route: 065
     Dates: start: 20201211
  11. NOVORAPID [Concomitant]
     Active Substance: INSULIN ASPART
     Indication: ILL-DEFINED DISORDER
     Dosage: UNK, USE AS DIRECTED
     Route: 065
     Dates: start: 20210107
  12. OMEPRAZOLE. [Concomitant]
     Active Substance: OMEPRAZOLE
     Indication: ILL-DEFINED DISORDER
     Dosage: UNK, TAKE TWO DAILY
     Route: 065
     Dates: start: 20201211
  13. ATORVASTATIN [Concomitant]
     Active Substance: ATORVASTATIN
     Indication: ILL-DEFINED DISORDER
     Dosage: UNK, TAKE ONE DAILY
     Route: 065
     Dates: start: 20201211
  14. FIASP [Concomitant]
     Active Substance: INSULIN ASPART
     Indication: ILL-DEFINED DISORDER
     Dosage: UNK, USE AS DIRECTED AS DIRECTED BY SPECIALIST TEAM
     Route: 065
     Dates: start: 20210505
  15. ZAPAIN [Concomitant]
     Active Substance: ACETAMINOPHEN\CODEINE PHOSPHATE
     Indication: ILL-DEFINED DISORDER
     Dosage: UNK, TAKE 1 OR 2 4 TIMES/DAY
     Route: 065
     Dates: start: 20210107

REACTIONS (2)
  - Palpitations [Recovered/Resolved]
  - Non-cardiac chest pain [Recovered/Resolved]

NARRATIVE: CASE EVENT DATE: 20210507
